FAERS Safety Report 8283157-4 (Version None)
Quarter: 2012Q2

REPORT INFORMATION
  Report Type: 
  Country: None (occurrence: None)
  Receive Date: 20120413
  Receipt Date: 20120412
  Transmission Date: 20120825
  Serious: Yes (Other)
  Sender: FDA-Public Use
  Company Number: FR-GLAXOSMITHKLINE-B0795044A

PATIENT
  Sex: Male

DRUGS (1)
  1. REQUIP [Suspect]
     Indication: PARKINSON'S DISEASE
     Route: 048
     Dates: start: 19990501

REACTIONS (5)
  - COMPULSIVE SHOPPING [None]
  - IMPULSE-CONTROL DISORDER [None]
  - HYPERSEXUALITY [None]
  - PATHOLOGICAL GAMBLING [None]
  - PSYCHOMOTOR HYPERACTIVITY [None]
